FAERS Safety Report 16264203 (Version 2)
Quarter: 2019Q2

REPORT INFORMATION
  Report Type: Spontaneous
  Country: JP (occurrence: JP)
  Receive Date: 20190502
  Receipt Date: 20190624
  Transmission Date: 20190711
  Serious: Yes (Death, Other)
  Sender: FDA-Public Use
  Company Number: JP-ROCHE-2310458

PATIENT
  Age: 59 Year
  Sex: Male

DRUGS (1)
  1. CELLCEPT [Suspect]
     Active Substance: MYCOPHENOLATE MOFETIL\MYCOPHENOLATE MOFETIL HYDROCHLORIDE
     Indication: PROPHYLAXIS AGAINST TRANSPLANT REJECTION
     Route: 048

REACTIONS (6)
  - Gastric ulcer haemorrhage [Unknown]
  - Atrial fibrillation [Unknown]
  - Hepatic failure [Unknown]
  - Hepatitis cholestatic [Unknown]
  - Cerebral infarction [Fatal]
  - Hepatitis C RNA increased [Unknown]
